FAERS Safety Report 5219407-8 (Version None)
Quarter: 2007Q1

REPORT INFORMATION
  Report Type: 
  Country: None (occurrence: None)
  Receive Date: 20061121
  Receipt Date: 20060906
  Transmission Date: 20070707
  Serious: No
  Sender: FDA-Public Use
  Company Number: TPA2006A01530

PATIENT
  Age: 18 Year
  Sex: Female
  Weight: 61.2356 kg

DRUGS (9)
  1. ROZEREM [Suspect]
     Indication: INSOMNIA
     Dosage: 8 MG, HS, PER ORAL
     Route: 048
     Dates: start: 20060601
  2. LUNESTA [Suspect]
     Indication: INSOMNIA
     Dosage: 3 MG, HS, PER ORAL
     Route: 048
     Dates: start: 20060601
  3. ETODOLAC [Concomitant]
  4. SINGULAIR [Concomitant]
  5. CYMBALTA [Concomitant]
  6. LEXAPRO [Concomitant]
  7. DARVOCET (PARACETAMOL, DEXTROPROPOXYPHENE NAPSILATE) [Concomitant]
  8. ULTRAM (TRAMADOL HYDROCHLORIDE) (50 MILLIGRAM, TABLETS) [Concomitant]
  9. XANAX [Concomitant]

REACTIONS (4)
  - GASTROINTESTINAL PAIN [None]
  - SINUSITIS [None]
  - SOMNOLENCE [None]
  - THERAPEUTIC RESPONSE DELAYED [None]
